FAERS Safety Report 8018735-0 (Version None)
Quarter: 2012Q1

REPORT INFORMATION
  Report Type: 
  Country: None (occurrence: None)
  Receive Date: 20120103
  Receipt Date: 20120103
  Transmission Date: 20120608
  Serious: Yes (Other)
  Sender: FDA-Public Use
  Company Number: None

PATIENT
  Age: 57 Year
  Sex: Male
  Weight: 88.45 kg

DRUGS (2)
  1. TRAMADOL HCL [Suspect]
     Indication: POLYMYALGIA RHEUMATICA
     Dosage: 50 MG 2-4 TABS QD
     Dates: start: 20101220, end: 20111110
  2. DURAGESIC-100 [Concomitant]
     Indication: POLYMYALGIA RHEUMATICA
     Dosage: 25MCG Q 3DAYS, 12Q 3 DAYS
     Dates: start: 20110905, end: 20111227

REACTIONS (13)
  - PAIN [None]
  - ABNORMAL DREAMS [None]
  - SOMNOLENCE [None]
  - DRUG TOLERANCE INCREASED [None]
  - HYPERHIDROSIS [None]
  - CHILLS [None]
  - INSOMNIA [None]
  - DRUG DEPENDENCE [None]
  - AKATHISIA [None]
  - NAUSEA [None]
  - WITHDRAWAL SYNDROME [None]
  - WEIGHT DECREASED [None]
  - FATIGUE [None]
